FAERS Safety Report 19725398 (Version 1)
Quarter: 2021Q3

REPORT INFORMATION
  Report Type: Other
  Country: US (occurrence: US)
  Receive Date: 20210819
  Receipt Date: 20210819
  Transmission Date: 20211014
  Serious: Yes (Other)
  Sender: FDA-Public Use
  Company Number: US-ROCHE-2891003

PATIENT
  Sex: Male

DRUGS (9)
  1. HEPARIN [Concomitant]
     Active Substance: HEPARIN SODIUM
  2. EPIPEN [Concomitant]
     Active Substance: EPINEPHRINE
  3. SOLU?MEDROL [Concomitant]
     Active Substance: METHYLPREDNISOLONE SODIUM SUCCINATE
  4. ALBUTEROL. [Concomitant]
     Active Substance: ALBUTEROL
  5. TYLENOL [Concomitant]
     Active Substance: ACETAMINOPHEN
  6. OCREVUS [Suspect]
     Active Substance: OCRELIZUMAB
     Indication: MULTIPLE SCLEROSIS
     Dosage: 600 MG IN NACL 0.9% 570 ML IVPB?ONE TIME ONLY
     Route: 042
     Dates: start: 20210524
  7. FAMOTIDINE. [Concomitant]
     Active Substance: FAMOTIDINE
  8. BENADRYL [Concomitant]
     Active Substance: DIPHENHYDRAMINE HYDROCHLORIDE
  9. CATHFLO ACTIVASE [Concomitant]
     Active Substance: ALTEPLASE

REACTIONS (1)
  - Bradycardia [Unknown]
